FAERS Safety Report 13781666 (Version 1)
Quarter: 2017Q3

REPORT INFORMATION
  Report Type: Spontaneous
  Country: FI (occurrence: FI)
  Receive Date: 20170724
  Receipt Date: 20170724
  Transmission Date: 20171127
  Serious: Yes (Life-Threatening, Hospitalization)
  Sender: FDA-Public Use
  Company Number: FI-PFIZER INC-3143051

PATIENT
  Age: 62 Year
  Sex: Male

DRUGS (13)
  1. PRIMPERAN [Concomitant]
     Active Substance: METOCLOPRAMIDE HYDROCHLORIDE
     Dosage: 10 ML, AS NEEDED, 1 X 1 TO 2
     Dates: start: 20150123, end: 20150715
  2. PRIMPERAN [Concomitant]
     Active Substance: METOCLOPRAMIDE HYDROCHLORIDE
     Dosage: UNK UNK, AS NEEDED, 1 X 3
     Dates: start: 20150319, end: 20150714
  3. ISOVORIN [Suspect]
     Active Substance: LEUCOVORIN CALCIUM
     Indication: CHEMOTHERAPY
     Dosage: 50 MG, UNK
     Route: 042
  4. NEUROTOL /00052501/ [Concomitant]
     Active Substance: CARBAMAZEPINE
     Dosage: 1 + 1 1/2
     Dates: start: 20150123
  5. OXALIPLATIN. [Suspect]
     Active Substance: OXALIPLATIN
     Indication: CHEMOTHERAPY
     Dosage: 185 MG, UNK
     Route: 042
  6. LITALGIN /00320201/ [Concomitant]
     Dosage: 5 ML, AS NEEDED, 1 X 1 TO 2
     Dates: start: 20150123, end: 20150715
  7. CAPECITABINE ORION [Concomitant]
     Dosage: 3 X 2
     Dates: start: 20150319, end: 20150626
  8. GRANISETRON STADA [Concomitant]
     Dosage: UNK UNK, AS NEEDED, 1 X 1 TO 2
     Dates: start: 20150319, end: 20150702
  9. KALEORID [Concomitant]
     Active Substance: POTASSIUM CHLORIDE
     Dosage: 1 X 2
     Dates: start: 20150703, end: 20150714
  10. NEUROBION FORTE /00358301/ [Concomitant]
     Dosage: UNK
     Dates: start: 20150319, end: 20150626
  11. FLUOROURACIL. [Suspect]
     Active Substance: FLUOROURACIL
     Indication: CHEMOTHERAPY
     Dosage: 850 MG, UNK
     Route: 042
  12. TEGRETOL [Concomitant]
     Active Substance: CARBAMAZEPINE
     Dosage: 1 + 1 1/2
     Dates: start: 20150123
  13. PARACETAMOL RATIOPHARM [Concomitant]
     Active Substance: ACETAMINOPHEN
     Dosage: 1 X 1 TO 3
     Dates: start: 20150203, end: 20150304

REACTIONS (9)
  - Muscle spasms [Recovered/Resolved]
  - Hypoaesthesia [Recovered/Resolved]
  - Paraesthesia [Recovered/Resolved]
  - Heart rate abnormal [Recovered/Resolved]
  - Hypertension [Recovered/Resolved]
  - Speech disorder [Recovered/Resolved]
  - Loss of consciousness [Recovered/Resolved]
  - Asthenia [Recovered/Resolved]
  - Urinary incontinence [Recovered/Resolved]

NARRATIVE: CASE EVENT DATE: 20150715
